FAERS Safety Report 25880663 (Version 1)
Quarter: 2025Q4

REPORT INFORMATION
  Report Type: Spontaneous
  Country: US (occurrence: US)
  Receive Date: 20251004
  Receipt Date: 20251004
  Transmission Date: 20260118
  Serious: No
  Sender: SANOFI AVENTIS
  Company Number: US-SA-2025SA228049

PATIENT
  Age: 17 Year
  Sex: Male
  Weight: 70.31 kg

DRUGS (2)
  1. DUPIXENT [Suspect]
     Active Substance: DUPILUMAB
     Indication: Dermatitis atopic
     Dosage: 300 MG, QOW
     Route: 058
     Dates: end: 2025
  2. SINGULAIR [Concomitant]
     Active Substance: MONTELUKAST SODIUM
     Dosage: UNK

REACTIONS (1)
  - Drug hypersensitivity [Unknown]

NARRATIVE: CASE EVENT DATE: 20250701
